FAERS Safety Report 20222074 (Version 1)
Quarter: 2021Q4

REPORT INFORMATION
  Report Type: Spontaneous
  Country: US (occurrence: None)
  Receive Date: 20211222
  Receipt Date: 20211222
  Transmission Date: 20220303
  Serious: Yes (Disabling)
  Sender: FDA-Public Use
  Company Number: None

PATIENT
  Age: 60 Year
  Sex: Male
  Weight: 60.75 kg

DRUGS (10)
  1. TACROLIMUS [Suspect]
     Active Substance: TACROLIMUS
     Indication: Transplant rejection
     Dosage: OTHER QUANTITY : 3 CAPSULE(S);?FREQUENCY : TWICE A DAY;?
     Route: 048
  2. Mofil mycophenylate (Cellcept) [Concomitant]
  3. PREDNISONE [Concomitant]
     Active Substance: PREDNISONE
  4. amlodipint [Concomitant]
  5. ROSUVASTATIN [Concomitant]
     Active Substance: ROSUVASTATIN
  6. Vitamins B,D,E (Tocotrienol) [Concomitant]
  7. COENZYME Q10 [Concomitant]
     Active Substance: DIETARY SUPPLEMENT\UBIDECARENONE
  8. IRON [Concomitant]
     Active Substance: IRON
  9. HERBALS\TURMERIC [Concomitant]
     Active Substance: HERBALS\TURMERIC
  10. GINKGO [Concomitant]
     Active Substance: GINKGO

REACTIONS (4)
  - Dyspnoea [None]
  - Chills [None]
  - Chest pain [None]
  - Tremor [None]

NARRATIVE: CASE EVENT DATE: 20211222
